FAERS Safety Report 9154548 (Version 1)
Quarter: 2013Q1

REPORT INFORMATION
  Report Type: Spontaneous
  Country: FR (occurrence: FR)
  Receive Date: 20130311
  Receipt Date: 20130311
  Transmission Date: 20140127
  Serious: Yes (Other)
  Sender: FDA-Public Use
  Company Number: FR-ASTRAZENECA-2013SE14052

PATIENT
  Age: 67 Year
  Sex: Female

DRUGS (6)
  1. INEXIUM [Suspect]
     Indication: HIATUS HERNIA
     Route: 048
     Dates: start: 2007, end: 201207
  2. INEXIUM [Suspect]
     Indication: GASTROOESOPHAGEAL REFLUX DISEASE
     Route: 048
     Dates: start: 2007, end: 201207
  3. INEXIUM [Suspect]
     Indication: HIATUS HERNIA
     Route: 048
     Dates: start: 201207, end: 201301
  4. INEXIUM [Suspect]
     Indication: GASTROOESOPHAGEAL REFLUX DISEASE
     Route: 048
     Dates: start: 201207, end: 201301
  5. INEXIUM [Suspect]
     Indication: HIATUS HERNIA
     Route: 048
     Dates: start: 201301
  6. INEXIUM [Suspect]
     Indication: GASTROOESOPHAGEAL REFLUX DISEASE
     Route: 048
     Dates: start: 201301

REACTIONS (6)
  - Dyspnoea [Recovered/Resolved]
  - Anxiety [Unknown]
  - Throat irritation [Recovering/Resolving]
  - Paraesthesia oral [Recovering/Resolving]
  - Drug ineffective [Recovered/Resolved]
  - Hiatus hernia [Unknown]
